FAERS Safety Report 20101627 (Version 1)
Quarter: 2021Q4

REPORT INFORMATION
  Report Type: Spontaneous
  Country: US (occurrence: None)
  Receive Date: 20211122
  Receipt Date: 20211122
  Transmission Date: 20220303
  Serious: Yes (Death, Hospitalization)
  Sender: FDA-Public Use
  Company Number: None

PATIENT
  Age: 4 Month
  Sex: Male

DRUGS (1)
  1. SILDENAFIL [Suspect]
     Active Substance: SILDENAFIL
     Dosage: OTHER FREQUENCY : OTHER;?
     Route: 030
     Dates: start: 202111, end: 202111

REACTIONS (2)
  - Respiratory failure [None]
  - Pyrexia [None]

NARRATIVE: CASE EVENT DATE: 20211115
